FAERS Safety Report 8391281-0 (Version None)
Quarter: 2012Q2

REPORT INFORMATION
  Report Type: 
  Country: None (occurrence: None)
  Receive Date: 20120529
  Receipt Date: 20111219
  Transmission Date: 20120825
  Serious: No
  Sender: FDA-Public Use
  Company Number: US-ABBOTT-11P-163-0885571-00

PATIENT
  Sex: Female
  Weight: 58.566 kg

DRUGS (15)
  1. CHOLORTHALADONE [Concomitant]
     Indication: BLOOD PRESSURE
  2. ASPIRIN [Concomitant]
     Indication: CARDIOVASCULAR EVENT PROPHYLAXIS
  3. FOSAMAX [Concomitant]
     Indication: OSTEOPOROSIS
  4. BENICAR [Concomitant]
     Indication: MITRAL VALVE PROLAPSE
  5. GLUCOSAMINE/CHONDROITIN [Concomitant]
     Indication: ARTHROPATHY
  6. PROTONIX [Concomitant]
     Indication: BARRETT'S OESOPHAGUS
  7. GLUCOSAMINE/CHONDROITIN [Concomitant]
     Indication: MINERAL SUPPLEMENTATION
  8. ALLOPURINOL [Concomitant]
     Indication: RENAL DISORDER
  9. PROZAC [Concomitant]
     Indication: DEPRESSION
  10. ZOCOR [Concomitant]
     Indication: BLOOD CHOLESTEROL
  11. ZEMPLAR [Suspect]
     Indication: RENAL DISORDER
     Dosage: ON MONDAYS AND FRIDAYS
     Route: 048
     Dates: start: 20110601, end: 20111001
  12. ZEMPLAR [Suspect]
     Dosage: ON MONDAYS
     Route: 048
     Dates: start: 20111001
  13. COREG [Concomitant]
     Indication: BLOOD PRESSURE
  14. VITAMIN B-12 [Concomitant]
     Indication: VITAMIN SUPPLEMENTATION
  15. IRON [Concomitant]
     Indication: MINERAL SUPPLEMENTATION

REACTIONS (5)
  - MENTAL IMPAIRMENT [None]
  - CERUMEN IMPACTION [None]
  - GAIT DISTURBANCE [None]
  - SOMNOLENCE [None]
  - BLOOD CALCIUM INCREASED [None]
